FAERS Safety Report 4320228-9 (Version None)
Quarter: 2004Q1

REPORT INFORMATION
  Report Type: 
  Country: None (occurrence: None)
  Receive Date: 20040317
  Receipt Date: 20040308
  Transmission Date: 20041129
  Serious: Yes (Death, Life-Threatening, Hospitalization)
  Sender: FDA-Public Use
  Company Number: 2003AP00341

PATIENT
  Age: 46 Year
  Sex: Female

DRUGS (15)
  1. IRESSA [Suspect]
     Indication: LUNG NEOPLASM MALIGNANT
     Dosage: 250 MG DAILY PO
     Route: 048
     Dates: start: 20020927, end: 20021017
  2. IRESSA [Suspect]
     Indication: LUNG NEOPLASM MALIGNANT
     Dosage: 250 MG DAILY PO
     Route: 048
     Dates: start: 20021030
  3. PARAPLATIN [Suspect]
     Indication: PERICARDITIS
     Dosage: 150 MG DAILY IC
     Dates: start: 20021213, end: 20021213
  4. PARAPLATIN [Suspect]
     Indication: PERICARDITIS
     Dosage: 150 MG DAILY IC
     Dates: start: 20021220, end: 20021220
  5. NAVELBINE [Suspect]
     Indication: LUNG NEOPLASM MALIGNANT
     Dosage: 36 MG DAILY IV
     Route: 042
     Dates: start: 20030108
  6. NAVELBINE [Suspect]
     Indication: LUNG NEOPLASM MALIGNANT
     Dosage: 20 MG/M2 IV
     Route: 042
  7. CODEINE PHOSPHATE [Concomitant]
  8. CLARITHROMYCIN [Concomitant]
  9. PREDNISOLONE [Concomitant]
  10. KYTRIL [Concomitant]
  11. GASTER [Concomitant]
  12. CISPLATIN [Concomitant]
  13. IRINOTECAN [Concomitant]
  14. PACLITAXEL [Concomitant]
  15. CARBOPLATIN [Concomitant]

REACTIONS (19)
  - ALANINE AMINOTRANSFERASE INCREASED [None]
  - ASPARTATE AMINOTRANSFERASE INCREASED [None]
  - BONE MARROW DEPRESSION [None]
  - BONE MARROW DISORDER [None]
  - BONE MARROW TOXICITY [None]
  - CARDIAC FAILURE [None]
  - CARDIAC TAMPONADE [None]
  - CARDIOMEGALY [None]
  - CONDITION AGGRAVATED [None]
  - LIVER DISORDER [None]
  - LUNG NEOPLASM MALIGNANT [None]
  - NEUTROPENIA [None]
  - NEUTROPHIL COUNT DECREASED [None]
  - PERICARDIAL EFFUSION [None]
  - PERICARDITIS [None]
  - PLEURAL EFFUSION [None]
  - PYREXIA [None]
  - RESPIRATORY ARREST [None]
  - WHITE BLOOD CELL COUNT DECREASED [None]
